FAERS Safety Report 24208686 (Version 3)
Quarter: 2024Q3

REPORT INFORMATION
  Report Type: Report from Study
  Country: DE (occurrence: DE)
  Receive Date: 20240814
  Receipt Date: 20240829
  Transmission Date: 20241016
  Serious: Yes (Death, Hospitalization, Other)
  Sender: ABBVIE
  Company Number: DE-ABBVIE-5879055

PATIENT
  Age: 74 Year
  Sex: Male

DRUGS (2)
  1. CARBIDOPA\LEVODOPA [Suspect]
     Active Substance: CARBIDOPA\LEVODOPA
     Indication: Parkinson^s disease
     Dosage: MD 11.0 ML; CRT 5.6 ML/H; CRN 4.0 ML/H; ED 3.0 ML
     Route: 050
     Dates: start: 20210414
  2. CARBIDOPA\LEVODOPA [Suspect]
     Active Substance: CARBIDOPA\LEVODOPA

REACTIONS (7)
  - Akinesia [Fatal]
  - Cerebrovascular accident [Not Recovered/Not Resolved]
  - Facial paralysis [Not Recovered/Not Resolved]
  - Device breakage [Recovered/Resolved]
  - Bronchitis [Not Recovered/Not Resolved]
  - Device dislocation [Unknown]
  - Device connection issue [Unknown]

NARRATIVE: CASE EVENT DATE: 20240101
